FAERS Safety Report 17485587 (Version 1)
Quarter: 2020Q1

REPORT INFORMATION
  Report Type: Spontaneous
  Country: US (occurrence: US)
  Receive Date: 20200302
  Receipt Date: 20200302
  Transmission Date: 20200409
  Serious: No
  Sender: FDA-Public Use
  Company Number: US-SA-2020SA052521

PATIENT
  Sex: Female

DRUGS (2)
  1. DUPIXENT [Suspect]
     Active Substance: DUPILUMAB
     Indication: DERMATITIS ATOPIC
     Dosage: 300 MG, QOW
     Route: 058
  2. ECZEMA RELIEF [Concomitant]
     Active Substance: ALLANTOIN\OATMEAL
     Dosage: UNK

REACTIONS (2)
  - Pruritus [Unknown]
  - Dry skin [Unknown]
